FAERS Safety Report 7154801-X (Version None)
Quarter: 2010Q4

REPORT INFORMATION
  Report Type: 
  Country: None (occurrence: None)
  Receive Date: 20101214
  Receipt Date: 20091109
  Transmission Date: 20110411
  Serious: No
  Sender: FDA-Public Use
  Company Number: US-AMGEN-KDL373665

PATIENT

DRUGS (10)
  1. ENBREL [Suspect]
     Indication: PRODUCT USED FOR UNKNOWN INDICATION
     Dosage: 50 MG, QWK
     Route: 058
  2. METHOTREXATE [Concomitant]
  3. ATORVASTATIN CALCIUM [Concomitant]
  4. ATENOLOL [Concomitant]
  5. UNSPECIFIED MEDICATION [Concomitant]
  6. LEVOTHYROXINE SODIUM [Concomitant]
  7. LANSOPRAZOLE [Concomitant]
  8. UNSPECIFIED MEDICATION [Concomitant]
  9. CALCIUM WITH VITAMIN D [Concomitant]
  10. UNSPECIFIED MEDICATION [Concomitant]

REACTIONS (2)
  - JOINT SWELLING [None]
  - OEDEMA PERIPHERAL [None]
